FAERS Safety Report 18051419 (Version 1)
Quarter: 2020Q3

REPORT INFORMATION
  Report Type: Spontaneous
  Country: US (occurrence: US)
  Receive Date: 20200721
  Receipt Date: 20200721
  Transmission Date: 20201103
  Serious: Yes (Hospitalization)
  Sender: FDA-Public Use
  Company Number: US-ROCHE-2558348

PATIENT
  Age: 87 Year
  Sex: Female

DRUGS (1)
  1. TNKASE [Suspect]
     Active Substance: TENECTEPLASE
     Indication: ISCHAEMIC STROKE
     Route: 042
     Dates: start: 201912

REACTIONS (3)
  - Intentional product use issue [Unknown]
  - Angioedema [Recovered/Resolved]
  - Off label use [Unknown]
